FAERS Safety Report 7819770-5 (Version None)
Quarter: 2011Q4

REPORT INFORMATION
  Report Type: 
  Country: None (occurrence: None)
  Receive Date: 20111018
  Receipt Date: 20100927
  Transmission Date: 20120403
  Serious: No
  Sender: FDA-Public Use
  Company Number: US-ASTRAZENECA-2010SE45354

PATIENT
  Age: 45 Year
  Sex: Female
  Weight: 87.1 kg

DRUGS (2)
  1. SYMBICORT [Suspect]
     Indication: DYSPNOEA
     Dosage: 160UG TWO TIMES A DAY
     Route: 055
  2. ALBUTEROL [Concomitant]

REACTIONS (3)
  - SWELLING FACE [None]
  - FLUSHING [None]
  - RASH [None]
